FAERS Safety Report 10991215 (Version 5)
Quarter: 2016Q1

REPORT INFORMATION
  Report Type: Spontaneous
  Country: US (occurrence: US)
  Receive Date: 20150406
  Receipt Date: 20160121
  Transmission Date: 20160525
  Serious: Yes (Hospitalization, Other)
  Sender: FDA-Public Use
  Company Number: US-009507513-1504USA002286

PATIENT
  Sex: Female
  Weight: 179.14 kg

DRUGS (1)
  1. NUVARING [Suspect]
     Active Substance: ETHINYL ESTRADIOL\ETONOGESTREL
     Indication: CONTRACEPTION
     Dosage: 3 WEEKS IN PLACE, ONE WEEK OUT
     Route: 067
     Dates: start: 20060526, end: 201404

REACTIONS (15)
  - Vitamin B12 decreased [Unknown]
  - Chest pain [Unknown]
  - Gastrointestinal disorder [Unknown]
  - Injection site haematoma [Unknown]
  - Anaemia folate deficiency [Unknown]
  - Pulmonary embolism [Unknown]
  - Deep vein thrombosis [Recovered/Resolved]
  - Depression [Unknown]
  - Affective disorder [Unknown]
  - Anticoagulation drug level below therapeutic [Recovered/Resolved]
  - Vitamin D deficiency [Unknown]
  - Asthma [Unknown]
  - Iron deficiency anaemia [Unknown]
  - Hyperglycaemia [Unknown]
  - Post-traumatic stress disorder [Unknown]

NARRATIVE: CASE EVENT DATE: 200608
